FAERS Safety Report 10594384 (Version 1)
Quarter: 2014Q4

REPORT INFORMATION
  Report Type: Spontaneous
  Country: US (occurrence: US)
  Receive Date: 20141119
  Receipt Date: 20141119
  Transmission Date: 20150529
  Serious: Yes (Other)
  Sender: FDA-Public Use
  Company Number: US-SPECTRUM PHARMACEUTICALS, INC.-14-B-US-00327

PATIENT

DRUGS (5)
  1. DOXORUBICIN [Suspect]
     Active Substance: DOXORUBICIN
     Indication: NEOPLASM OF THYMUS
     Dosage: 25 MG/M2, ON DAYS 2 AND 3, IV PUSH OVER 3-5 MIN
     Route: 042
  2. BELINOSTAT [Suspect]
     Active Substance: BELINOSTAT
     Indication: NEOPLASM OF THYMUS
     Dosage: 250 MG/M2, 12-HR CONTINOUS INFUSION
     Route: 042
  3. BELINOSTAT [Suspect]
     Active Substance: BELINOSTAT
     Dosage: 500 MG/M2, 12-HR CONTINOUS INFUSION
     Route: 042
  4. CISPLATIN. [Suspect]
     Active Substance: CISPLATIN
     Indication: NEOPLASM OF THYMUS
     Dosage: 50 MG/M2, OVER 60 MIN IV ON DAY 2
     Route: 042
  5. CYCLOPHOSPHAMIDE. [Suspect]
     Active Substance: CYCLOPHOSPHAMIDE
     Indication: NEOPLASM OF THYMUS
     Dosage: 500 MG/M2, OVER 60 MIN IV ON DAY 3
     Route: 042

REACTIONS (20)
  - Embolism [Unknown]
  - Hearing impaired [Unknown]
  - Hypermagnesaemia [Unknown]
  - Hypomagnesaemia [Unknown]
  - Atrial fibrillation [Unknown]
  - Hypoalbuminaemia [Unknown]
  - Neutrophil count decreased [Unknown]
  - Urinary tract infection [Unknown]
  - White blood cell count decreased [Unknown]
  - Hypocalcaemia [Unknown]
  - Hyponatraemia [Unknown]
  - Enterocolitis infectious [Unknown]
  - Syncope [Unknown]
  - Lymphocyte count decreased [Unknown]
  - Hypophosphataemia [Unknown]
  - Ejection fraction decreased [Unknown]
  - Lung infection [Unknown]
  - Hypoxia [Unknown]
  - Non-cardiac chest pain [Unknown]
  - Pain in extremity [Unknown]
